FAERS Safety Report 4323218-5 (Version None)
Quarter: 2004Q1

REPORT INFORMATION
  Report Type: 
  Country: None (occurrence: None)
  Receive Date: 20040322
  Receipt Date: 20040315
  Transmission Date: 20041129
  Serious: Yes (Hospitalization)
  Sender: FDA-Public Use
  Company Number: 2004UW04843

PATIENT

DRUGS (2)
  1. NEXIUM [Suspect]
     Dosage: ^40^ QD PO
     Route: 048
  2. VIOXX [Suspect]
     Dosage: ^25^ QD

REACTIONS (1)
  - DUODENAL ULCER [None]
